FAERS Safety Report 5943191-3 (Version None)
Quarter: 2008Q4

REPORT INFORMATION
  Report Type: 
  Country: None (occurrence: None)
  Receive Date: 20081106
  Receipt Date: 20081031
  Transmission Date: 20090506
  Serious: Yes (Hospitalization)
  Sender: FDA-Public Use
  Company Number: B0477227A

PATIENT
  Age: 56 Year
  Sex: Female
  Weight: 45 kg

DRUGS (14)
  1. VALTREX [Suspect]
     Indication: HERPES ZOSTER
     Dosage: 1000MG PER DAY
     Route: 048
     Dates: start: 20070620, end: 20070625
  2. CELESTONE [Concomitant]
     Indication: MICROSCOPIC POLYANGIITIS
     Dosage: 1.25MG PER DAY
     Route: 048
     Dates: start: 20050101
  3. LOCHOL [Concomitant]
     Dosage: 20MG PER DAY
     Route: 048
     Dates: start: 20050101
  4. ONEALFA [Concomitant]
     Indication: OSTEOPOROSIS
     Dosage: .5MCG PER DAY
     Route: 048
     Dates: start: 20050101
  5. NU-LOTAN [Concomitant]
     Indication: HYPERTENSION
     Dosage: 100MG PER DAY
     Route: 048
     Dates: start: 20050101
  6. AMLODIN [Concomitant]
     Indication: HYPERTENSION
     Dosage: 5MG PER DAY
     Route: 048
     Dates: start: 20050101
  7. CALBLOCK [Concomitant]
     Indication: HYPERTENSION
     Dosage: 16MG PER DAY
     Route: 048
     Dates: start: 20050101
  8. LANSOPRAZOLE [Concomitant]
     Indication: GASTRIC ULCER
     Dosage: 15MG PER DAY
     Route: 048
     Dates: start: 20050101
  9. CALTAN [Concomitant]
     Dosage: 1500MG PER DAY
     Route: 048
     Dates: start: 20050101
  10. FOIPAN [Concomitant]
     Dosage: 600MG PER DAY
     Route: 048
     Dates: start: 20050101
  11. MUCOSTA [Concomitant]
     Indication: GASTRITIS
     Dosage: 300MG PER DAY
     Route: 048
     Dates: start: 20050101
  12. COTRIM [Concomitant]
     Indication: PROPHYLAXIS
     Dosage: 2UNIT PER DAY
     Route: 048
     Dates: start: 20050101
  13. FUNGIZONE [Concomitant]
     Dosage: 6ML PER DAY
     Route: 048
     Dates: start: 20050101
  14. ALLOID G [Concomitant]
     Indication: GASTRITIS
     Dosage: 60ML PER DAY
     Route: 048
     Dates: start: 20050101

REACTIONS (17)
  - ABNORMAL BEHAVIOUR [None]
  - ALTERED STATE OF CONSCIOUSNESS [None]
  - BLOOD PRESSURE INCREASED [None]
  - COMMUNICATION DISORDER [None]
  - CONVULSION [None]
  - DIZZINESS [None]
  - DYSLALIA [None]
  - ENCEPHALOPATHY [None]
  - FALL [None]
  - FEELING ABNORMAL [None]
  - HALLUCINATION [None]
  - HYPERTENSIVE ENCEPHALOPATHY [None]
  - MYOCLONUS [None]
  - OVERDOSE [None]
  - REVERSIBLE POSTERIOR LEUKOENCEPHALOPATHY SYNDROME [None]
  - SWELLING FACE [None]
  - VOMITING [None]
